FAERS Safety Report 7433913-7 (Version None)
Quarter: 2011Q2

REPORT INFORMATION
  Report Type: 
  Country: None (occurrence: None)
  Receive Date: 20110418
  Receipt Date: 20110406
  Transmission Date: 20111010
  Serious: Yes (Death)
  Sender: FDA-Public Use
  Company Number: JP-2011-10270

PATIENT
  Age: 82 Year
  Sex: Male

DRUGS (5)
  1. ISOTONIC SODIUM CHLORIDE (ISOTONIC SODIUM CHLORIDE) [Concomitant]
  2. ALBUMIN (HUMAN) [Concomitant]
  3. SOLDEM (MAINTENANCE MEDIUM) [Concomitant]
  4. SAMSCA [Suspect]
     Indication: DIURETIC THERAPY
     Dosage: 15 MG MILLIGRAM(S), QD, PARENTERAL
     Route: 051
     Dates: start: 20110208, end: 20110210
  5. LASIX [Concomitant]

REACTIONS (6)
  - HYPERNATRAEMIA [None]
  - RESPIRATORY ARREST [None]
  - HYPERCAPNIA [None]
  - ALTERED STATE OF CONSCIOUSNESS [None]
  - HYPOALBUMINAEMIA [None]
  - CONDITION AGGRAVATED [None]
